FAERS Safety Report 9255779 (Version 1)
Quarter: 2013Q2

REPORT INFORMATION
  Report Type: Report from Study
  Country: MX (occurrence: MX)
  Receive Date: 20130425
  Receipt Date: 20130425
  Transmission Date: 20140414
  Serious: Yes (Hospitalization)
  Sender: FDA-Public Use
  Company Number: MX-ABBOTT-12P-107-1017310-00

PATIENT
  Age: 46 Year
  Sex: Male

DRUGS (6)
  1. HUMIRA [Suspect]
     Indication: ANKYLOSING SPONDYLITIS
     Route: 058
     Dates: start: 20121118
  2. MOBICOX [Concomitant]
     Indication: ANKYLOSING SPONDYLITIS
     Dosage: 1 TAB/DAY/MONTH
     Dates: start: 201210
  3. CALCORT [Concomitant]
     Indication: ANKYLOSING SPONDYLITIS
     Dosage: AT NIGHT
     Dates: start: 201210
  4. TRIXILEM [Concomitant]
     Indication: ANKYLOSING SPONDYLITIS
     Dosage: ON SUNDAY AFTERNOON
     Dates: start: 201210
  5. OMEPRAZOLE [Concomitant]
     Indication: GASTRIC DISORDER
     Dosage: IN THE MORNING
     Dates: start: 201210
  6. UNIVAL [Concomitant]
     Indication: ANKYLOSING SPONDYLITIS
     Dosage: EVERY 6 H AND BEDTIME
     Dates: start: 201210

REACTIONS (2)
  - Anxiety [Recovered/Resolved]
  - Feeling of despair [Unknown]
